FAERS Safety Report 23098681 (Version 2)
Quarter: 2023Q4

REPORT INFORMATION
  Report Type: Report from Study
  Country: IT (occurrence: IT)
  Receive Date: 20231023
  Receipt Date: 20231028
  Transmission Date: 20240110
  Serious: Yes (Other)
  Sender: FDA-Public Use
  Company Number: IT-CELLTRION INC.-2023IT020138

PATIENT

DRUGS (3)
  1. BEVACIZUMAB [Suspect]
     Active Substance: BEVACIZUMAB
     Indication: Adenocarcinoma of colon
     Dosage: 350 MILLIGRAM
     Route: 042
     Dates: start: 20230918, end: 20230918
  2. FLUOROURACIL [Suspect]
     Active Substance: FLUOROURACIL
     Indication: Adenocarcinoma of colon
     Dosage: 3570 MILLIGRAM
     Route: 042
     Dates: start: 20230918, end: 20230918
  3. IRINOTECAN [Suspect]
     Active Substance: IRINOTECAN
     Indication: Adenocarcinoma of colon
     Dosage: 230 MILLIGRAM
     Route: 042
     Dates: start: 20230918, end: 20230918

REACTIONS (1)
  - Faecaluria [Unknown]

NARRATIVE: CASE EVENT DATE: 20230919
